FAERS Safety Report 6111748-5 (Version None)
Quarter: 2009Q1

REPORT INFORMATION
  Report Type: 
  Country: None (occurrence: None)
  Receive Date: 20090309
  Receipt Date: 20090224
  Transmission Date: 20090719
  Serious: Yes (Other)
  Sender: FDA-Public Use
  Company Number: 1000005030

PATIENT
  Age: 66 Year
  Sex: Female

DRUGS (4)
  1. NEBIVOLOL HCL [Suspect]
     Indication: CARDIAC FAILURE
     Dosage: 5 MILLIGRAM/MILLILITERS (5 MILLIGRAM/MILLILITERS, 1 IN 1 D), ORAL
     Route: 048
     Dates: start: 20080408, end: 20080805
  2. BURINEX [Concomitant]
  3. PERINDOPRIL ERBUMINE [Concomitant]
  4. INSPRA [Concomitant]

REACTIONS (1)
  - VENTRICULAR FIBRILLATION [None]
